FAERS Safety Report 24453002 (Version 1)
Quarter: 2024Q4

REPORT INFORMATION
  Report Type: Spontaneous
  Country: US (occurrence: US)
  Receive Date: 20241017
  Receipt Date: 20241017
  Transmission Date: 20250115
  Serious: No
  Sender: SUNOVION
  Company Number: US-SMPA-202406-URV-000938AA

PATIENT
  Sex: Female
  Weight: 88.45 kg

DRUGS (3)
  1. GEMTESA [Suspect]
     Active Substance: VIBEGRON
     Indication: Hypertonic bladder
     Dosage: UNK
     Route: 065
  2. DUPILUMAB [Concomitant]
     Active Substance: DUPILUMAB
     Indication: Psoriatic arthropathy
     Dosage: 300 MG, EVERY OTHER WEEK
     Route: 058
  3. DUPILUMAB [Concomitant]
     Active Substance: DUPILUMAB
     Dosage: 300 MG, EVERY OTHER WEEK
     Route: 058

REACTIONS (1)
  - Eczema [Unknown]
